FAERS Safety Report 23654520 (Version 1)
Quarter: 2024Q1

REPORT INFORMATION
  Report Type: Spontaneous
  Country: CN (occurrence: CN)
  Receive Date: 20240320
  Receipt Date: 20240320
  Transmission Date: 20240410
  Serious: Yes (Other)
  Sender: FDA-Public Use
  Company Number: CN-009507513-2403CHN006004

PATIENT
  Age: 35 Year
  Sex: Male
  Weight: 69 kg

DRUGS (3)
  1. LAGEVRIO [Suspect]
     Active Substance: MOLNUPIRAVIR
     Indication: Coronavirus infection
     Dosage: 4  PILLULES (ALSO REPORTED AS 4 TABLETS, CONFLICTING INFORMATION WITH ORIGINAL AGENCY REPORT), EVERY
     Route: 048
     Dates: start: 20240306, end: 20240308
  2. CLINDAMYCIN HYDROCHLORIDE [Suspect]
     Active Substance: CLINDAMYCIN HYDROCHLORIDE
     Indication: Coronavirus infection
     Dosage: 1 PILLULE (ALSO REPORTED AS 1 TABLET, CONFLICTING INFORMATION WITH ORIGINAL AGENCY REPORT), THREE TI
     Route: 048
     Dates: start: 20240306, end: 20240308
  3. CARBOCYSTEINE [Suspect]
     Active Substance: CARBOCYSTEINE
     Indication: Coronavirus infection
     Dosage: 1 VIAL, THREE TIMES A DAY (TID)
     Route: 048
     Dates: start: 20240306, end: 20240308

REACTIONS (2)
  - Pruritus [Recovering/Resolving]
  - Macule [Recovering/Resolving]

NARRATIVE: CASE EVENT DATE: 20240308
